FAERS Safety Report 5383498-4 (Version None)
Quarter: 2007Q3

REPORT INFORMATION
  Report Type: 
  Country: None (occurrence: None)
  Receive Date: 20070706
  Receipt Date: 20070629
  Transmission Date: 20080115
  Serious: Yes (Other)
  Sender: FDA-Public Use
  Company Number: 2007AL002629

PATIENT
  Age: 69 Year
  Sex: Female

DRUGS (5)
  1. METFORMIN HYDROCHLORIDE [Suspect]
     Indication: TYPE 2 DIABETES MELLITUS
     Dosage: 500 MG; QD; PO
     Route: 048
     Dates: start: 20070503, end: 20070610
  2. ASPIRIN [Concomitant]
  3. SIMVASTATIN [Concomitant]
  4. DICLOFENAC [Concomitant]
  5. LISINOPRIL [Concomitant]

REACTIONS (5)
  - ASTHENIA [None]
  - CONSTIPATION [None]
  - DYSPEPSIA [None]
  - LOSS OF CONTROL OF LEGS [None]
  - PARAESTHESIA [None]
